FAERS Safety Report 10459466 (Version 1)
Quarter: 2014Q3

REPORT INFORMATION
  Report Type: Spontaneous
  Country: BR (occurrence: BR)
  Receive Date: 20140917
  Receipt Date: 20140917
  Transmission Date: 20150326
  Serious: Yes (Other)
  Sender: FDA-Public Use
  Company Number: BR-PFIZER INC-2014252440

PATIENT
  Age: 33 Year
  Sex: Female
  Weight: 63 kg

DRUGS (1)
  1. LYRICA [Suspect]
     Active Substance: PREGABALIN
     Indication: INTERVERTEBRAL DISC PROTRUSION
     Dosage: 75 MG, 1 CAPSULE A DAY
     Route: 048
     Dates: start: 2012

REACTIONS (2)
  - Feeling abnormal [Unknown]
  - Intervertebral disc protrusion [Unknown]
